FAERS Safety Report 12383956 (Version 2)
Quarter: 2016Q2

REPORT INFORMATION
  Report Type: Spontaneous
  Country: IT (occurrence: IT)
  Receive Date: 20160519
  Receipt Date: 20160606
  Transmission Date: 20160815
  Serious: Yes (Death, Hospitalization)
  Sender: FDA-Public Use
  Company Number: IT-ROCHE-1759486

PATIENT
  Age: 55 Year
  Sex: Male

DRUGS (2)
  1. MABTHERA [Suspect]
     Active Substance: RITUXIMAB
     Indication: RHEUMATOID ARTHRITIS
     Route: 042
     Dates: start: 20141001, end: 20151231
  2. ROACTEMRA [Suspect]
     Active Substance: TOCILIZUMAB
     Indication: RHEUMATOID ARTHRITIS
     Route: 042
     Dates: start: 20111201, end: 20140430

REACTIONS (6)
  - Asthenia [Fatal]
  - Ataxia [Fatal]
  - Encephalitis [Fatal]
  - Diplopia [Fatal]
  - Lung abscess [Fatal]
  - Dyslalia [Fatal]

NARRATIVE: CASE EVENT DATE: 20160330
